FAERS Safety Report 4652670-0 (Version None)
Quarter: 2005Q2

REPORT INFORMATION
  Report Type: 
  Country: None (occurrence: None)
  Receive Date: 20050502
  Receipt Date: 20050420
  Transmission Date: 20051028
  Serious: Yes (Hospitalization, Other)
  Sender: FDA-Public Use
  Company Number: 2004040071

PATIENT
  Age: 75 Year
  Sex: Female

DRUGS (2)
  1. SERTRALINE HCL [Suspect]
     Indication: DEPRESSION
     Dosage: 50 MG
  2. TRAMADOL HCL [Suspect]
     Indication: PAIN
     Dosage: 50 MG (50 MG, 1 IN 1 D)

REACTIONS (4)
  - CONFUSIONAL STATE [None]
  - CSF TEST ABNORMAL [None]
  - ELECTROENCEPHALOGRAM ABNORMAL [None]
  - MYOCLONUS [None]
